FAERS Safety Report 8734742 (Version 3)
Quarter: 2012Q4

REPORT INFORMATION
  Report Type: 
  Country: US (occurrence: None)
  Receive Date: 20120803
  Receipt Date: 20120822
  Transmission Date: 20130627
  Serious: No
  Sender: FDA-Public Use
  Company Number: TPA2012A05073

PATIENT
  Age: 63 Year
  Sex: Female

DRUGS (7)
  1. DEXILANT [Suspect]
     Indication: GASTROOESOPHAGEAL REFLUX DISEASE
     Dosage: 1 IN 1 D, PER ORAL
     Route: 048
     Dates: start: 20120520, end: 2012
  2. DEXILANT [Suspect]
     Indication: GASTROOESOPHAGEAL REFLUX DISEASE
     Dosage: 1 IN 1 D, PER ORAL
     Route: 048
     Dates: start: 2012, end: 20120717
  3. DEXILANT [Suspect]
     Indication: GASTROOESOPHAGEAL REFLUX DISEASE
     Dosage: 1 IN 1 D, PER ORAL
     Route: 048
     Dates: start: 20120720
  4. CARTIA (DILTIAZEM HYDROCHLORIDE) [Concomitant]
  5. LISINOPRIL (LISINOPRIL) [Concomitant]
  6. SYNTHROID (LEVOTHYROXINE SODIUM) [Concomitant]
  7. FLORENT (SACCHAROMYCES BOULARDII) [Concomitant]

REACTIONS (3)
  - Abdominal pain upper [None]
  - Dysphonia [None]
  - Hepatic lesion [None]
